FAERS Safety Report 22164038 (Version 12)
Quarter: 2025Q4

REPORT INFORMATION
  Report Type: Report from Study
  Country: KR (occurrence: KR)
  Receive Date: 20230402
  Receipt Date: 20251121
  Transmission Date: 20260117
  Serious: Yes (Death, Other)
  Sender: NOVARTIS
  Company Number: KR-002147023-NVSC2022KR296037

PATIENT
  Age: 54 Year
  Sex: Female
  Weight: 59.8 kg

DRUGS (42)
  1. KISQALI [Suspect]
     Active Substance: RIBOCICLIB SUCCINATE
     Indication: Hormone receptor positive HER2 negative breast cancer
     Dosage: 600 MG, QD
     Route: 048
     Dates: start: 20221118, end: 20221130
  2. KISQALI [Suspect]
     Active Substance: RIBOCICLIB SUCCINATE
     Dosage: 600 MG, QD
     Route: 048
     Dates: start: 20221201, end: 20221225
  3. KISQALI [Suspect]
     Active Substance: RIBOCICLIB SUCCINATE
     Dosage: 400 MG, QD
     Route: 048
     Dates: start: 20221226
  4. MAGNESIUM HYDROXIDE [Concomitant]
     Active Substance: MAGNESIUM HYDROXIDE
     Indication: Prophylaxis
     Dosage: 3 DOSAGE FORM, QD
     Route: 048
     Dates: start: 20221115, end: 20221225
  5. Mulex [Concomitant]
     Indication: Prophylaxis
     Dosage: 3 DOSAGE FORM, QD
     Route: 048
     Dates: start: 20221115, end: 20221210
  6. AUGMENTIN [Concomitant]
     Active Substance: AMOXICILLIN\CLAVULANATE POTASSIUM
     Indication: Prophylaxis
     Dosage: 3 DOSAGE FORM, QD
     Route: 048
     Dates: start: 20221116, end: 20221119
  7. NALOXONE HYDROCHLORIDE\OXYCODONE HYDROCHLORIDE [Concomitant]
     Active Substance: NALOXONE HYDROCHLORIDE\OXYCODONE HYDROCHLORIDE
     Indication: Prophylaxis
     Dosage: 2 DOSAGE FORM, QD
     Route: 048
     Dates: start: 20221118, end: 20221118
  8. OXYCODONE HYDROCHLORIDE [Concomitant]
     Active Substance: OXYCODONE HYDROCHLORIDE
     Indication: Prophylaxis
     Dosage: 3 DOSAGE FORM, QD
     Route: 048
     Dates: start: 20221116, end: 20221118
  9. OXYCODONE HYDROCHLORIDE [Concomitant]
     Active Substance: OXYCODONE HYDROCHLORIDE
     Dosage: 5 MG, QD (5 DOSAGE FORM)
     Route: 048
     Dates: start: 20221119, end: 20221220
  10. Hepa merz [Concomitant]
     Indication: Prophylaxis
     Dosage: 2000 MG, QD
     Route: 042
     Dates: start: 20221118, end: 20221119
  11. Hepa merz [Concomitant]
     Dosage: 2000 MG, QD
     Route: 042
     Dates: start: 20221212
  12. FASLODEX [Concomitant]
     Active Substance: FULVESTRANT
     Indication: Hormone therapy
     Dosage: 250 MG, QD
     Route: 030
     Dates: start: 20221118, end: 20221118
  13. FASLODEX [Concomitant]
     Active Substance: FULVESTRANT
     Dosage: 250 MG, QD
     Route: 030
     Dates: start: 20221125, end: 20221125
  14. FASLODEX [Concomitant]
     Active Substance: FULVESTRANT
     Dosage: 250 MG, QD
     Route: 030
     Dates: start: 20221226, end: 20221226
  15. OLMESARTAN MEDOXOMIL [Concomitant]
     Active Substance: OLMESARTAN MEDOXOMIL
     Indication: Hypertension
     Dosage: 1 DOSAGE FORM, QD
     Route: 048
     Dates: start: 20221114, end: 20221213
  16. Dichlozid [Concomitant]
     Indication: Hypertension
     Dosage: 25 MG, QD (0.5 TAB)
     Route: 048
     Dates: start: 20221114, end: 20221212
  17. LINAGLIPTIN [Concomitant]
     Active Substance: LINAGLIPTIN
     Indication: Diabetes mellitus
     Dosage: 1 DOSAGE FORM, QD
     Route: 048
     Dates: start: 20221114, end: 20221226
  18. PROPACETAMOL HYDROCHLORIDE [Concomitant]
     Active Substance: PROPACETAMOL HYDROCHLORIDE
     Indication: Prophylaxis
     Dosage: 1 G, QD
     Route: 042
     Dates: start: 20221118, end: 20221118
  19. PROPACETAMOL HYDROCHLORIDE [Concomitant]
     Active Substance: PROPACETAMOL HYDROCHLORIDE
     Dosage: 1 G, QD
     Route: 042
     Dates: start: 20221207, end: 20221207
  20. PROPACETAMOL HYDROCHLORIDE [Concomitant]
     Active Substance: PROPACETAMOL HYDROCHLORIDE
     Dosage: 2 G, QD
     Route: 042
     Dates: start: 20221230
  21. Tacenol [Concomitant]
     Indication: Prophylaxis
     Dosage: 3 DOSAGE FORM (FORMULATION: 8HOURS ER TAB)
     Route: 048
     Dates: start: 20221119, end: 20221122
  22. Peniramin [Concomitant]
     Indication: Prophylaxis
     Dosage: 4 MG, QD
     Route: 042
     Dates: start: 20221201, end: 20221201
  23. Peniramin [Concomitant]
     Dosage: 4 MG, QD
     Route: 042
     Dates: start: 20221212
  24. URSODIOL [Concomitant]
     Active Substance: URSODIOL
     Indication: Prophylaxis
     Dosage: 3 DOSAGE FORM, QD
     Route: 048
     Dates: start: 20221114, end: 20221225
  25. ERDOSTEINE [Concomitant]
     Active Substance: ERDOSTEINE
     Indication: Prophylaxis
     Dosage: 3 DOSAGE FORM, QD
     Route: 048
     Dates: start: 20221212, end: 20221225
  26. MAXIPIME [Concomitant]
     Active Substance: CEFEPIME HYDROCHLORIDE
     Indication: Prophylaxis
     Dosage: 1 G, QD
     Route: 042
     Dates: start: 20221213, end: 20221220
  27. Tylicol [Concomitant]
     Indication: Prophylaxis
     Dosage: 1 G, QD
     Route: 042
     Dates: start: 20221213
  28. LASIX [Concomitant]
     Active Substance: FUROSEMIDE
     Indication: Hypertension
     Dosage: 20 MG, QD
     Route: 042
     Dates: start: 20221213, end: 20221220
  29. Phosten [Concomitant]
     Indication: Prophylaxis
     Dosage: 20 ML, QD (AMP) (PP)
     Route: 042
     Dates: start: 20221214, end: 20221214
  30. LASIX [Concomitant]
     Active Substance: FUROSEMIDE
     Indication: Hypertension
     Dosage: 1 DOSAGE FORM, QD
     Route: 048
     Dates: start: 20221218, end: 20221219
  31. Tasna [Concomitant]
     Indication: Prophylaxis
     Dosage: 2 DOSAGE FORM, QD
     Route: 048
     Dates: start: 20221219, end: 20221226
  32. Pine [Concomitant]
     Indication: Prophylaxis
     Dosage: 5000 IU, QD
     Route: 042
     Dates: start: 20221221, end: 20221225
  33. SMOFLIPID [Concomitant]
     Active Substance: FISH OIL\MEDIUM-CHAIN TRIGLYCERIDES\OLIVE OIL\SOYBEAN OIL
     Indication: Prophylaxis
     Dosage: 250 ML, QD
     Route: 042
     Dates: start: 20221223, end: 20221226
  34. XGEVA [Concomitant]
     Active Substance: DENOSUMAB
     Indication: Prophylaxis
     Dosage: 120 MG, QD
     Route: 058
     Dates: start: 20221226, end: 20221226
  35. FENTANYL [Concomitant]
     Active Substance: FENTANYL
     Indication: Prophylaxis
     Dosage: UNK (DUROGESIC D-TRANS PATCH 50 MCG/H, 1 PAT)
     Route: 065
     Dates: start: 20221226, end: 20221226
  36. HYDROCORTISONE SODIUM SUCCINATE [Concomitant]
     Active Substance: HYDROCORTISONE SODIUM SUCCINATE
     Indication: Prophylaxis
     Dosage: 50 MG, QD
     Route: 042
     Dates: start: 20221228
  37. PANTOPRAZOLE SODIUM [Concomitant]
     Active Substance: PANTOPRAZOLE SODIUM
     Indication: Prophylaxis
     Dosage: 160 MG, QD
     Route: 042
     Dates: start: 20221228, end: 20221229
  38. NEXIUM [Concomitant]
     Active Substance: ESOMEPRAZOLE MAGNESIUM
     Indication: Prophylaxis
     Dosage: 40 MG (NEXIUM IV)
     Route: 042
     Dates: start: 20221228, end: 20221228
  39. ACETYLCYSTEINE [Concomitant]
     Active Substance: ACETYLCYSTEINE
     Indication: Prophylaxis
     Dosage: 600 MG (6 ML)
     Route: 042
     Dates: start: 20221228, end: 20221228
  40. KETOROLAC TROMETHAMINE [Concomitant]
     Active Substance: KETOROLAC TROMETHAMINE
     Indication: Prophylaxis
     Dosage: 30 MG, QD
     Route: 042
     Dates: start: 20221230
  41. ULTRACET [Concomitant]
     Active Substance: ACETAMINOPHEN\TRAMADOL HYDROCHLORIDE
     Indication: Prophylaxis
     Dosage: 2 DOSAGE FORM (ULTRACET ER SEMI TAB)
     Route: 048
     Dates: start: 20221115, end: 20221119
  42. K contin continus [Concomitant]
     Indication: Prophylaxis
     Dosage: 3 G, QD
     Route: 048
     Dates: start: 20221119, end: 20221119

REACTIONS (8)
  - Sepsis [Fatal]
  - Blood pressure decreased [Fatal]
  - Body temperature increased [Fatal]
  - C-reactive protein increased [Fatal]
  - Acute kidney injury [Not Recovered/Not Resolved]
  - Blood urea increased [Unknown]
  - COVID-19 [Not Recovered/Not Resolved]
  - Blood creatinine increased [Unknown]

NARRATIVE: CASE EVENT DATE: 20221201
